FAERS Safety Report 4663947-7 (Version None)
Quarter: 2005Q2

REPORT INFORMATION
  Report Type: 
  Country: None (occurrence: None)
  Receive Date: 20050503
  Receipt Date: 20050405
  Transmission Date: 20051028
  Serious: Yes (Other)
  Sender: FDA-Public Use
  Company Number: GXBR2005US00521

PATIENT
  Age: 48 Year
  Sex: Male
  Weight: 71.2 kg

DRUGS (3)
  1. RIBAVIRIN [Suspect]
     Indication: HEPATITIS C
     Dosage: 1200 MG QD, ORAL
     Route: 048
  2. PEG-INTRON [Suspect]
     Indication: HEPATITIS C
     Dosage: 120 MCG QWK, SUBCUTANEOUS
     Route: 058
  3. ALPRAZOLAM [Suspect]
     Indication: ANXIETY
     Dosage: 1 MG QD PRN, ORAL
     Route: 048

REACTIONS (4)
  - HAEMOGLOBIN DECREASED [None]
  - RASH [None]
  - SUICIDE ATTEMPT [None]
  - WHITE BLOOD CELL COUNT DECREASED [None]
